FAERS Safety Report 4328049-8 (Version None)
Quarter: 2004Q1

REPORT INFORMATION
  Report Type: 
  Country: None (occurrence: None)
  Receive Date: 20040331
  Receipt Date: 20040227
  Transmission Date: 20041129
  Serious: Yes (Other)
  Sender: FDA-Public Use
  Company Number: JP-MERCK-0403USA00101

PATIENT
  Age: 70 Year
  Sex: Male

DRUGS (4)
  1. [THERAPY UNSPECIFIED] [Concomitant]
     Indication: PERIARTHRITIS
     Route: 048
     Dates: start: 20030407
  2. FOSAMAX [Suspect]
     Indication: OSTEOPOROSIS
     Route: 048
     Dates: start: 20030812, end: 20030826
  3. LOXONIN [Concomitant]
     Indication: MONARTHRITIS
     Route: 048
     Dates: start: 20030301, end: 20030826
  4. ADALAT [Concomitant]
     Indication: HYPERTENSION
     Route: 048
     Dates: start: 20030407

REACTIONS (7)
  - ANAEMIA [None]
  - GASTRIC ULCER HAEMORRHAGE [None]
  - HEADACHE [None]
  - HYPERHIDROSIS [None]
  - MUSCLE CRAMP [None]
  - PALPITATIONS [None]
  - WHITE BLOOD CELL COUNT INCREASED [None]
